FAERS Safety Report 24702056 (Version 1)
Quarter: 2024Q4

REPORT INFORMATION
  Report Type: Spontaneous
  Country: CN (occurrence: CN)
  Receive Date: 20241205
  Receipt Date: 20241205
  Transmission Date: 20250115
  Serious: Yes (Life-Threatening, Hospitalization)
  Sender: BAYER HEALTHCARE PHARMACEUTICALS INC.
  Company Number: CN-BAYER-2024A171847

PATIENT
  Age: 77 Year
  Sex: Male
  Weight: 65 kg

DRUGS (2)
  1. KERENDIA [Suspect]
     Active Substance: FINERENONE
     Indication: Diabetic nephropathy
     Dosage: 10 MG, QD
     Route: 048
     Dates: start: 20241019, end: 20241122
  2. KERENDIA [Suspect]
     Active Substance: FINERENONE
     Indication: Proteinuria

REACTIONS (7)
  - Hyperkalaemia [Recovered/Resolved]
  - Blood urea increased [Recovered/Resolved]
  - Blood creatinine increased [Recovered/Resolved]
  - PO2 increased [None]
  - PCO2 decreased [None]
  - Blood sodium decreased [None]
  - Blood calcium decreased [None]

NARRATIVE: CASE EVENT DATE: 20241119
